FAERS Safety Report 6262811-X (Version None)
Quarter: 2009Q3

REPORT INFORMATION
  Report Type: 
  Country: None (occurrence: None)
  Receive Date: 20090709
  Receipt Date: 20090629
  Transmission Date: 20100115
  Serious: Yes (Life-Threatening, Hospitalization)
  Sender: FDA-Public Use
  Company Number: DK-MERCK-0907DNK00001

PATIENT
  Age: 65 Year
  Sex: Female
  Weight: 63 kg

DRUGS (9)
  1. ZOCOR [Suspect]
     Indication: HYPERCHOLESTEROLAEMIA
     Route: 048
     Dates: start: 20060101, end: 20090101
  2. ZOCOR [Suspect]
     Route: 048
     Dates: start: 20090101, end: 20090425
  3. GEMFIBROZIL [Concomitant]
     Indication: HYPERCHOLESTEROLAEMIA
     Route: 048
     Dates: start: 20060101, end: 20090425
  4. VALSARTAN [Concomitant]
     Indication: HYPERTENSION
     Route: 048
     Dates: end: 20090425
  5. ALLOPURINOL [Concomitant]
     Indication: GOUT
     Route: 048
     Dates: end: 20090425
  6. AMLODIPINE [Concomitant]
     Indication: HYPERTENSION
     Route: 048
     Dates: end: 20090425
  7. METFORMIN HYDROCHLORIDE [Concomitant]
     Indication: DIABETES MELLITUS
     Route: 048
     Dates: end: 20090425
  8. ATENOLOL [Concomitant]
     Indication: HYPERTENSION
     Route: 048
     Dates: end: 20090425
  9. BENDROFLUMETHIAZIDE AND POTASSIUM CHLORIDE [Concomitant]
     Indication: HYPERTENSION
     Route: 048
     Dates: end: 20090425

REACTIONS (2)
  - RENAL FAILURE [None]
  - RHABDOMYOLYSIS [None]
